FAERS Safety Report 17853889 (Version 1)
Quarter: 2020Q2

REPORT INFORMATION
  Report Type: Spontaneous
  Country: FR (occurrence: FR)
  Receive Date: 20200603
  Receipt Date: 20200603
  Transmission Date: 20200714
  Serious: Yes (Other)
  Sender: FDA-Public Use
  Company Number: FR-SUN PHARMACEUTICAL INDUSTRIES LTD-2020RR-249158

PATIENT
  Age: 47 Year
  Sex: Female

DRUGS (6)
  1. IRINOTECAN [Suspect]
     Active Substance: IRINOTECAN
     Indication: COLON CANCER METASTATIC
     Dosage: NON COMMUNIQUEE
     Route: 042
     Dates: start: 20170511, end: 20170511
  2. EMEND [Suspect]
     Active Substance: APREPITANT
     Indication: PROPHYLAXIS OF NAUSEA AND VOMITING
     Dosage: NON COMMUNIQUEE
     Route: 048
     Dates: start: 20170511, end: 20170513
  3. ZOPHREN [Concomitant]
     Active Substance: ONDANSETRON
     Indication: PROPHYLAXIS OF NAUSEA AND VOMITING
     Dosage: NON COMMUNIQUEE
     Route: 048
     Dates: start: 20170511, end: 20170511
  4. FLUOROURACILE [Suspect]
     Active Substance: FLUOROURACIL
     Indication: COLON CANCER METASTATIC
     Dosage: NON COMMUNIQUEE
     Route: 042
     Dates: start: 20170511, end: 20170513
  5. OXALIPLATIN. [Suspect]
     Active Substance: OXALIPLATIN
     Indication: COLON CANCER METASTATIC
     Dosage: NON COMMUNIQUEE
     Route: 042
     Dates: start: 20170511, end: 20170511
  6. SELEXID (AMDINOCILLIN PIVOXIL HYDROCHLORIDE) [Suspect]
     Active Substance: PIVMECILLINAM HYDROCHLORIDE
     Indication: CYSTITIS
     Dosage: NON COMMUNIQUEE
     Route: 048
     Dates: start: 20170511, end: 20170513

REACTIONS (1)
  - Tongue oedema [Recovered/Resolved]

NARRATIVE: CASE EVENT DATE: 20170513
